FAERS Safety Report 5554674-2 (Version None)
Quarter: 2007Q4

REPORT INFORMATION
  Report Type: 
  Country: None (occurrence: None)
  Receive Date: 20071211
  Receipt Date: 20071211
  Transmission Date: 20080405
  Serious: No
  Sender: FDA-Public Use
  Company Number: None

PATIENT

DRUGS (2)
  1. BETAMETHASONE [Suspect]
     Dosage: ? AT LEAST 1
     Dates: start: 20070915
  2. BETAMETHASONE [Suspect]
     Dosage: ? AT LEAST 1
     Dates: start: 20071006

REACTIONS (3)
  - HEADACHE [None]
  - INFLUENZA [None]
  - NAUSEA [None]
